FAERS Safety Report 10922790 (Version 1)
Quarter: 2015Q1

REPORT INFORMATION
  Report Type: Spontaneous
  Country: GB (occurrence: GB)
  Receive Date: 20150317
  Receipt Date: 20150317
  Transmission Date: 20150721
  Serious: Yes (Other)
  Sender: FDA-Public Use
  Company Number: GB-GLAXOSMITHKLINE-GB2015032800

PATIENT
  Age: 68 Year
  Sex: Female
  Weight: 60.77 kg

DRUGS (2)
  1. ALENDRONIC ACID [Concomitant]
     Active Substance: ALENDRONIC ACID
  2. AVAMYS [Suspect]
     Active Substance: FLUTICASONE FUROATE
     Indication: RHINORRHOEA
     Dosage: 1 SPRAY IN EACH NOSTRIL, ONCE DAILY
     Route: 045
     Dates: start: 20150109, end: 201503

REACTIONS (2)
  - Epistaxis [Recovered/Resolved]
  - Agitation [Recovered/Resolved with Sequelae]

NARRATIVE: CASE EVENT DATE: 20150118
